FAERS Safety Report 19208124 (Version 2)
Quarter: 2022Q1

REPORT INFORMATION
  Report Type: Spontaneous
  Country: US (occurrence: US)
  Receive Date: 20210503
  Receipt Date: 20220307
  Transmission Date: 20220423
  Serious: Yes (Other)
  Sender: FDA-Public Use
  Company Number: US-PFIZER INC-2018321052

PATIENT
  Age: 55 Year
  Sex: Male

DRUGS (2)
  1. LYRICA [Suspect]
     Active Substance: PREGABALIN
     Indication: Diabetes mellitus
     Dosage: 450 MG, DAILY (ONE TABLET IN THE MORNING AND TWO TABLETS AT NIGHT)
     Dates: start: 20190604
  2. LYRICA [Suspect]
     Active Substance: PREGABALIN
     Indication: Diabetic neuropathy
     Dosage: 450 MG, DAILY (ONE TABLET IN THE MORNING AND TWO TABLETS AT NIGHT)
     Dates: start: 20210107

REACTIONS (2)
  - Bell^s palsy [Unknown]
  - Off label use [Unknown]

NARRATIVE: CASE EVENT DATE: 20190604
